FAERS Safety Report 7564784-6 (Version None)
Quarter: 2011Q2

REPORT INFORMATION
  Report Type: 
  Country: None (occurrence: None)
  Receive Date: 20110622
  Receipt Date: 20101201
  Transmission Date: 20111010
  Serious: Yes (Other)
  Sender: FDA-Public Use
  Company Number: US-MYLANLABS-2010S1021215

PATIENT
  Age: 44 Year
  Sex: Female

DRUGS (5)
  1. CLOZAPINE [Suspect]
     Route: 048
     Dates: end: 20101126
  2. LAMICTAL [Concomitant]
     Route: 048
  3. LEVOTHYROXINE SODIUM [Concomitant]
     Route: 048
  4. SEROQUEL [Concomitant]
     Route: 048
  5. LITHIUM CARBONATE [Concomitant]
     Route: 048

REACTIONS (2)
  - LEUKOPENIA [None]
  - GRANULOCYTOPENIA [None]
